FAERS Safety Report 4470009-0 (Version None)
Quarter: 2004Q3

REPORT INFORMATION
  Report Type: 
  Country: None (occurrence: None)
  Receive Date: 20040920
  Receipt Date: 20040317
  Transmission Date: 20050211
  Serious: Yes (Hospitalization)
  Sender: FDA-Public Use
  Company Number: SP00208

PATIENT
  Sex: Female

DRUGS (1)
  1. COLAZAL [Suspect]
     Dates: start: 20031201, end: 20040316

REACTIONS (3)
  - CONDITION AGGRAVATED [None]
  - GASTROINTESTINAL HAEMORRHAGE [None]
  - GASTROINTESTINAL PAIN [None]
